FAERS Safety Report 21081705 (Version 1)
Quarter: 2022Q3

REPORT INFORMATION
  Report Type: Spontaneous
  Country: US (occurrence: US)
  Receive Date: 20220714
  Receipt Date: 20220714
  Transmission Date: 20221027
  Serious: No
  Sender: FDA-Public Use
  Company Number: US-PFIZER INC-202200949995

PATIENT
  Age: 45 Year
  Sex: Female

DRUGS (1)
  1. XELJANZ XR [Suspect]
     Active Substance: TOFACITINIB CITRATE
     Indication: Psoriatic arthropathy
     Dosage: 1 DF, 1X/DAY
     Route: 048

REACTIONS (4)
  - Transaminases increased [Unknown]
  - Musculoskeletal stiffness [Unknown]
  - Arthralgia [Unknown]
  - Psoriasis [Recovering/Resolving]
